FAERS Safety Report 8080807-2 (Version None)
Quarter: 2012Q1

REPORT INFORMATION
  Report Type: 
  Country: None (occurrence: None)
  Receive Date: 20120130
  Receipt Date: 20120116
  Transmission Date: 20120608
  Serious: Yes (Other)
  Sender: FDA-Public Use
  Company Number: DE-ROCHE-1030692

PATIENT

DRUGS (2)
  1. MABTHERA [Suspect]
     Indication: B-CELL LYMPHOMA
  2. BENDAMUSTINE [Suspect]
     Indication: B-CELL LYMPHOMA

REACTIONS (23)
  - NAUSEA [None]
  - VOMITING [None]
  - DIARRHOEA [None]
  - ANAEMIA [None]
  - FATIGUE [None]
  - VERTIGO [None]
  - PSYCHIATRIC SYMPTOM [None]
  - TOXICITY TO VARIOUS AGENTS [None]
  - LEUKOPENIA [None]
  - INFECTION [None]
  - WEIGHT DECREASED [None]
  - PAIN [None]
  - BURSITIS [None]
  - NEPHROPATHY TOXIC [None]
  - NIGHT SWEATS [None]
  - THROMBOPHLEBITIS [None]
  - EXTRAVASATION [None]
  - HYPOTENSION [None]
  - THROMBOCYTOPENIA [None]
  - ALOPECIA [None]
  - NEUTROPENIA [None]
  - CONSTIPATION [None]
  - SKIN TOXICITY [None]
